FAERS Safety Report 6965491-0 (Version None)
Quarter: 2010Q3

REPORT INFORMATION
  Report Type: 
  Country: None (occurrence: None)
  Receive Date: 20100903
  Receipt Date: 20100830
  Transmission Date: 20110219
  Serious: Yes (Hospitalization)
  Sender: FDA-Public Use
  Company Number: R0013047A

PATIENT
  Sex: Male

DRUGS (4)
  1. BLINDED VACCINE [Suspect]
     Route: 030
     Dates: start: 20100614, end: 20100614
  2. MAGNESIUM VALPROATE [Suspect]
     Indication: EPILEPSY
     Dosage: 4.5TAB PER DAY
     Route: 048
     Dates: start: 20100802, end: 20100816
  3. LAMOTRIGINE [Suspect]
     Indication: EPILEPSY
     Dosage: 4.5TAB PER DAY
     Route: 048
     Dates: start: 20100802, end: 20100816
  4. CLOBAZAM [Concomitant]
     Indication: EPILEPSY
     Dosage: 1TAB PER DAY
     Route: 048
     Dates: start: 20100817

REACTIONS (1)
  - DRUG TOXICITY [None]
